FAERS Safety Report 9492449 (Version 1)
Quarter: 2013Q3

REPORT INFORMATION
  Report Type: Report from Study
  Country: US (occurrence: US)
  Receive Date: 20130830
  Receipt Date: 20130830
  Transmission Date: 20140515
  Serious: Yes (Other)
  Sender: FDA-Public Use
  Company Number: US-ROCHE-1267238

PATIENT
  Sex: Female
  Weight: 61.25 kg

DRUGS (13)
  1. KADCYLA [Suspect]
     Indication: BREAST CANCER
     Route: 042
     Dates: start: 20120824, end: 20130228
  2. PERTUZUMAB [Suspect]
     Indication: BREAST CANCER
     Dosage: COMPLETED 10 CYCLES
     Route: 065
     Dates: start: 20120824, end: 20130228
  3. ZOLEDRONIC ACID [Concomitant]
     Route: 042
  4. DEXAMETHASONE [Concomitant]
     Route: 042
  5. COQ-10 [Concomitant]
     Dosage: 2 CAPSULES TWICE A DAY
     Route: 048
  6. VITAMIN B12 [Concomitant]
     Dosage: 1000MCG AS DIRECTED DAILY
     Route: 048
  7. TRAMADOL HCL [Concomitant]
     Indication: PAIN
     Dosage: 1 TO 2  SOLUBLE TABLETS AS NEEDED FOR PAIN EVERY 4 HOURS
     Route: 048
  8. VITAMIN C [Concomitant]
     Route: 048
  9. ALPHA LIPOIC ACID [Concomitant]
     Dosage: AS DIRECTED DAILY
     Route: 048
  10. ANASTROZOLE [Concomitant]
     Dosage: 30 DAYS 30 TABLETS REFILL 11
     Route: 048
  11. ONDANSETRON [Concomitant]
  12. TAXOTERE [Concomitant]
     Route: 065
     Dates: start: 20120824, end: 20130228
  13. TRASTUZUMAB [Concomitant]
     Dosage: COMPLETED 10 CYCLES
     Route: 065
     Dates: start: 20120824, end: 20130228

REACTIONS (1)
  - Disease progression [Unknown]
